FAERS Safety Report 17001757 (Version 1)
Quarter: 2019Q4

REPORT INFORMATION
  Report Type: Report from Study
  Country: AU (occurrence: AU)
  Receive Date: 20191106
  Receipt Date: 20191106
  Transmission Date: 20200122
  Serious: No
  Sender: FDA-Public Use
  Company Number: AU-BEH-2019108927

PATIENT
  Age: 65 Year
  Weight: 84 kg

DRUGS (1)
  1. HIZENTRA [Suspect]
     Active Substance: HUMAN IMMUNOGLOBULIN G
     Indication: SECONDARY IMMUNODEFICIENCY
     Dosage: 9 GRAM (45 ML), QW
     Route: 058
     Dates: start: 20191101

REACTIONS (1)
  - Infusion site pain [Unknown]

NARRATIVE: CASE EVENT DATE: 20191101
